FAERS Safety Report 15652053 (Version 5)
Quarter: 2019Q3

REPORT INFORMATION
  Report Type: Spontaneous
  Country: FI (occurrence: FI)
  Receive Date: 20181123
  Receipt Date: 20190718
  Transmission Date: 20191004
  Serious: Yes (Hospitalization, Other)
  Sender: FDA-Public Use
  Company Number: FI-TEVA-2018-FI-977676

PATIENT
  Age: 53 Year
  Sex: Female

DRUGS (8)
  1. SPIRIX [Concomitant]
     Active Substance: SPIRONOLACTONE
     Dosage: 25 MG,DAILY
     Route: 048
  2. ESTRENA [Suspect]
     Active Substance: ESTRADIOL
     Indication: HORMONE REPLACEMENT THERAPY
     Route: 065
     Dates: start: 201803, end: 201807
  3. FLAGYL [Concomitant]
     Active Substance: METRONIDAZOLE\METRONIDAZOLE HYDROCHLORIDE
     Indication: PRODUCT USED FOR UNKNOWN INDICATION
     Dosage: 400 MILLIGRAM DAILY; DOSAGE FORM: UNSPECIFIED
     Route: 065
     Dates: start: 20180622, end: 20180702
  4. SPORANOX [Suspect]
     Active Substance: ITRACONAZOLE
     Indication: FUNGAL INFECTION
     Dosage: 100 MILLIGRAM DAILY;
     Route: 048
     Dates: start: 20180617, end: 201807
  5. PRECOSA [Suspect]
     Active Substance: SACCHAROMYCES CEREVISIAE
     Indication: PROPHYLAXIS
     Route: 048
     Dates: start: 2018
  6. CIPROFLOXACIN. [Interacting]
     Active Substance: CIPROFLOXACIN
     Indication: PRODUCT USED FOR UNKNOWN INDICATION
     Dosage: 500 MILLIGRAM DAILY; DOSAGE FORM: UNSPECIFIED
     Route: 065
     Dates: start: 20180608, end: 20180624
  7. CIPROXIN [Suspect]
     Active Substance: CIPROFLOXACIN
     Indication: PSEUDOMONAS INFECTION
     Route: 048
     Dates: start: 20180608, end: 20180624
  8. DESLORATADINE. [Concomitant]
     Active Substance: DESLORATADINE
     Dosage: 5 MG,DAILY
     Route: 048

REACTIONS (67)
  - Haematoma [Not Recovered/Not Resolved]
  - Pain in extremity [Not Recovered/Not Resolved]
  - Umbilical discharge [Not Recovered/Not Resolved]
  - Tremor [Recovered/Resolved]
  - Erythema [Unknown]
  - Headache [Unknown]
  - Multi-organ disorder [Recovered/Resolved]
  - Nasopharyngitis [Recovered/Resolved]
  - Arthralgia [Not Recovered/Not Resolved]
  - Arrhythmia [Not Recovered/Not Resolved]
  - Erythema [Not Recovered/Not Resolved]
  - Ear pruritus [Not Recovered/Not Resolved]
  - Malaise [Recovering/Resolving]
  - Scar [Unknown]
  - Swelling face [Unknown]
  - Pain of skin [Not Recovered/Not Resolved]
  - Heart rate increased [Recovering/Resolving]
  - Lacrimal disorder [Recovered/Resolved]
  - Fungal infection [Not Recovered/Not Resolved]
  - Epistaxis [Not Recovered/Not Resolved]
  - Lymphadenopathy [Not Recovered/Not Resolved]
  - Gait disturbance [Not Recovered/Not Resolved]
  - Vulvovaginal mycotic infection [Not Recovered/Not Resolved]
  - Heart rate increased [Recovering/Resolving]
  - Insomnia [Not Recovered/Not Resolved]
  - Palpitations [Recovering/Resolving]
  - Blood cholesterol decreased [Recovered/Resolved]
  - Dry skin [Not Recovered/Not Resolved]
  - Palpitations [Recovering/Resolving]
  - Anxiety [Not Recovered/Not Resolved]
  - Feeling hot [Recovered/Resolved]
  - Dehydration [Recovered/Resolved]
  - Vitamin B12 increased [Recovered/Resolved]
  - Suicidal ideation [Not Recovered/Not Resolved]
  - Thrombosis [Not Recovered/Not Resolved]
  - Depressed mood [Not Recovered/Not Resolved]
  - Paraesthesia [Not Recovered/Not Resolved]
  - Skin oedema [Not Recovered/Not Resolved]
  - Sarcoidosis [Not Recovered/Not Resolved]
  - Psychomotor hyperactivity [Not Recovered/Not Resolved]
  - Thyroxine free increased [Recovering/Resolving]
  - Skin ulcer [Not Recovered/Not Resolved]
  - Product use issue [Unknown]
  - Muscular weakness [Unknown]
  - Urine output increased [Recovered/Resolved]
  - Tremor [Recovered/Resolved]
  - Fatigue [Recovered/Resolved]
  - Product use issue [Unknown]
  - Feeling abnormal [Not Recovered/Not Resolved]
  - Livedo reticularis [Not Recovered/Not Resolved]
  - Feeling abnormal [Recovered/Resolved]
  - Nausea [Not Recovered/Not Resolved]
  - Thyroxine free increased [Not Recovered/Not Resolved]
  - Eyelid erosion [Not Recovered/Not Resolved]
  - Crying [Not Recovered/Not Resolved]
  - Conjunctival haemorrhage [Not Recovered/Not Resolved]
  - Joint swelling [Not Recovered/Not Resolved]
  - Drug ineffective [Unknown]
  - Blood pressure diastolic increased [Recovering/Resolving]
  - Drug interaction [Not Recovered/Not Resolved]
  - Arthropathy [Not Recovered/Not Resolved]
  - Weight decreased [Not Recovered/Not Resolved]
  - Dyspnoea [Recovered/Resolved]
  - Skin burning sensation [Unknown]
  - Nausea [Not Recovered/Not Resolved]
  - Hypermetabolism [Recovered/Resolved]
  - Haemoglobin increased [Recovered/Resolved]

NARRATIVE: CASE EVENT DATE: 2018
